FAERS Safety Report 4467972-0 (Version None)
Quarter: 2004Q4

REPORT INFORMATION
  Report Type: 
  Country: None (occurrence: None)
  Receive Date: 20041007
  Receipt Date: 20040915
  Transmission Date: 20050328
  Serious: Yes (Death)
  Sender: FDA-Public Use
  Company Number: 200412776EU

PATIENT
  Age: 51 Year
  Sex: Male

DRUGS (14)
  1. KETEK [Suspect]
     Indication: BRONCHITIS ACUTE
     Route: 048
     Dates: start: 20040903
  2. XANTHIUM [Concomitant]
     Indication: BRONCHITIS ACUTE
     Route: 048
  3. DUOVENT [Concomitant]
     Route: 055
  4. VENTOLIN [Concomitant]
     Indication: BRONCHITIS ACUTE
     Dosage: DOSE: 4-6; DOSE UNIT: UNITS
     Route: 055
  5. SERETIDE DISKUS [Concomitant]
     Route: 055
  6. LYSOMUCIL [Concomitant]
     Indication: BRONCHITIS ACUTE
     Route: 048
  7. DEPAKINE 500 [Concomitant]
     Indication: EPILEPSY
     Route: 048
  8. MYSOLIN [Concomitant]
     Indication: EPILEPSY
     Route: 048
  9. TEMESTA [Concomitant]
     Indication: ANXIETY
     Route: 048
  10. TEMESTA [Concomitant]
     Indication: INSOMNIA
     Route: 048
  11. ASAFLOW [Concomitant]
     Indication: ARTERITIS
     Route: 048
  12. ATACAND [Concomitant]
     Indication: HYPERTENSION
     Route: 048
  13. AUGMENTIN - SLOW RELEASE [Concomitant]
     Indication: BRONCHITIS ACUTE
     Route: 048
  14. MEDROL [Concomitant]
     Indication: BRONCHITIS ACUTE

REACTIONS (1)
  - DEATH [None]
